FAERS Safety Report 4760940-0 (Version None)
Quarter: 2005Q3

REPORT INFORMATION
  Report Type: 
  Country: None (occurrence: None)
  Receive Date: 20050901
  Receipt Date: 20050818
  Transmission Date: 20060218
  Serious: Yes (Hospitalization)
  Sender: FDA-Public Use
  Company Number: 216549

PATIENT
  Age: 63 Year
  Sex: Female
  Weight: 74.5 kg

DRUGS (7)
  1. BEVACIZUMAB(BEVACIZUMAB) PWDR + SOLVENT,INFUSION SOLN, 100MG [Suspect]
     Indication: OVARIAN CANCER
     Dosage: 1118 MG, Q3W, INTRAVENOUS
     Route: 042
     Dates: start: 20050511, end: 20050802
  2. ATIVAN [Concomitant]
  3. EFFEXOR [Concomitant]
  4. MULTI-VITAMINS [Concomitant]
  5. COMPAZINE [Concomitant]
  6. WARFARIN SODIUM [Concomitant]
  7. DOCUSATE (DOCUSATE SODIUM) [Concomitant]

REACTIONS (23)
  - ASTHENIA [None]
  - BODY TEMPERATURE DECREASED [None]
  - BUNDLE BRANCH BLOCK [None]
  - CHEST PAIN [None]
  - CHILLS [None]
  - COMPUTERISED TOMOGRAM ABNORMAL [None]
  - CREPITATIONS [None]
  - DIZZINESS [None]
  - DYSPHONIA [None]
  - DYSPNOEA EXERTIONAL [None]
  - EJECTION FRACTION DECREASED [None]
  - ELECTROCARDIOGRAM T WAVE ABNORMAL [None]
  - FATIGUE [None]
  - INCREASED UPPER AIRWAY SECRETION [None]
  - LUNG DISORDER [None]
  - OXYGEN SATURATION DECREASED [None]
  - PALLOR [None]
  - PRODUCTIVE COUGH [None]
  - PULMONARY EMBOLISM [None]
  - PULMONARY HYPERTENSION [None]
  - TACHYPNOEA [None]
  - TRICUSPID VALVE INCOMPETENCE [None]
  - VENTRICULAR HYPERTROPHY [None]
